FAERS Safety Report 7001571-1 (Version None)
Quarter: 2010Q3

REPORT INFORMATION
  Report Type: 
  Country: None (occurrence: None)
  Receive Date: 20100920
  Receipt Date: 20100909
  Transmission Date: 20110219
  Serious: Yes (Hospitalization)
  Sender: FDA-Public Use
  Company Number: CA-JNJFOC-20100807723

PATIENT
  Sex: Female
  Weight: 71.8 kg

DRUGS (5)
  1. REMICADE [Suspect]
     Indication: CROHN'S DISEASE
     Route: 042
  2. REMICADE [Suspect]
     Route: 042
  3. SALOFALK ENEMA [Concomitant]
     Indication: PRODUCT USED FOR UNKNOWN INDICATION
  4. ENTOCORT EC [Concomitant]
     Indication: PRODUCT USED FOR UNKNOWN INDICATION
  5. IMURAN [Concomitant]
     Route: 048

REACTIONS (8)
  - HEADACHE [None]
  - LABYRINTHITIS [None]
  - NAUSEA [None]
  - OTITIS MEDIA [None]
  - PHARYNGEAL ERYTHEMA [None]
  - VERTIGO [None]
  - VOMITING [None]
  - WHEEZING [None]
